FAERS Safety Report 12239688 (Version 5)
Quarter: 2016Q3

REPORT INFORMATION
  Report Type: Spontaneous
  Country: IT (occurrence: IT)
  Receive Date: 20160405
  Receipt Date: 20160728
  Transmission Date: 20161109
  Serious: Yes (Hospitalization)
  Sender: FDA-Public Use
  Company Number: IT-SA-2016SA063982

PATIENT
  Age: 54 Year
  Sex: Female

DRUGS (7)
  1. EUTIROX [Concomitant]
     Active Substance: LEVOTHYROXINE SODIUM
     Dates: start: 2008
  2. AUBAGIO [Suspect]
     Active Substance: TERIFLUNOMIDE
     Indication: MULTIPLE SCLEROSIS
     Route: 048
     Dates: start: 20150213, end: 20160220
  3. AUBAGIO [Suspect]
     Active Substance: TERIFLUNOMIDE
     Indication: MULTIPLE SCLEROSIS
     Route: 065
     Dates: start: 2016, end: 20160228
  4. BISOPROLOL FUMARATE/HYDROCHLOROTHIAZIDE [Suspect]
     Active Substance: BISOPROLOL FUMARATE\HYDROCHLOROTHIAZIDE
     Indication: HYPERTENSION
     Dosage: DOSE: 2.5/6.5 MG
     Route: 048
     Dates: start: 20111201, end: 20160228
  5. PRAZENE [Concomitant]
     Active Substance: PRAZEPAM
     Dates: start: 2006
  6. CIPRALEX [Concomitant]
     Active Substance: ESCITALOPRAM OXALATE
     Dates: start: 2008
  7. ACETYLCARNITINE [Concomitant]
     Active Substance: ACETYLCARNITINE
     Indication: SUPPLEMENTATION THERAPY
     Route: 048
     Dates: start: 20130101, end: 20160412

REACTIONS (5)
  - Iridocyclitis [Recovering/Resolving]
  - Tubulointerstitial nephritis and uveitis syndrome [Recovering/Resolving]
  - Tubulointerstitial nephritis [Recovering/Resolving]
  - Anaemia [Recovering/Resolving]
  - Acute kidney injury [Recovered/Resolved]

NARRATIVE: CASE EVENT DATE: 20160101
